FAERS Safety Report 14800979 (Version 1)
Quarter: 2018Q2

REPORT INFORMATION
  Report Type: Spontaneous
  Country: FR (occurrence: FR)
  Receive Date: 20180424
  Receipt Date: 20180424
  Transmission Date: 20180711
  Serious: Yes (Hospitalization)
  Sender: FDA-Public Use
  Company Number: FR-ROCHE-2109262

PATIENT
  Age: 38 Year
  Sex: Male
  Weight: 89 kg

DRUGS (9)
  1. OXYNORM [Concomitant]
     Active Substance: OXYCODONE HYDROCHLORIDE
     Route: 065
  2. COTELLIC [Suspect]
     Active Substance: COBIMETINIB
     Indication: MALIGNANT MELANOMA
     Dosage: ON 05/MAR/2018, HE RECEIVED MOST RECENT DOSE OF COBIMETINIB
     Route: 048
     Dates: start: 20171109
  3. PERFALGAN [Concomitant]
     Active Substance: ACETAMINOPHEN
     Route: 065
  4. STILNOX [Concomitant]
     Active Substance: ZOLPIDEM TARTRATE
     Route: 065
  5. OXYCONTIN [Concomitant]
     Active Substance: OXYCODONE HYDROCHLORIDE
     Route: 065
  6. SERESTA [Concomitant]
     Active Substance: OXAZEPAM
     Route: 065
  7. ZELBORAF [Suspect]
     Active Substance: VEMURAFENIB
     Indication: MALIGNANT MELANOMA
     Dosage: ON 05/MAR/2018, HE RECEIVED MOST RECENT DOSE OF  VEMURAFENIB
     Route: 048
     Dates: start: 20171109
  8. LYRICA [Concomitant]
     Active Substance: PREGABALIN
     Route: 065
  9. VERSATIS [Concomitant]
     Active Substance: LIDOCAINE
     Route: 065

REACTIONS (5)
  - Rash [Recovered/Resolved]
  - Uveitis [Recovering/Resolving]
  - Diarrhoea [Recovered/Resolved]
  - Chills [Recovered/Resolved]
  - Pyrexia [Recovered/Resolved]

NARRATIVE: CASE EVENT DATE: 20171124
